FAERS Safety Report 9339880 (Version 1)
Quarter: 2013Q2

REPORT INFORMATION
  Report Type: Spontaneous
  Country: DE (occurrence: None)
  Receive Date: 20130605
  Receipt Date: 20130605
  Transmission Date: 20140414
  Serious: Yes (Congenital Anomaly, Other)
  Sender: FDA-Public Use
  Company Number: GER/GER/13/0029792

PATIENT
  Age: 0 Year
  Sex: Male
  Weight: 1.77 kg

DRUGS (2)
  1. SERTRALINE [Suspect]
     Indication: PRODUCT USED FOR UNKNOWN INDICATION
     Route: 064
     Dates: start: 20090125
  2. VITAMINS [Concomitant]

REACTIONS (9)
  - Maternal drugs affecting foetus [None]
  - Small for dates baby [None]
  - Naevus flammeus [None]
  - Haemangioma congenital [None]
  - Feeding disorder neonatal [None]
  - Premature baby [None]
  - Foetal growth restriction [None]
  - Breech presentation [None]
  - Caesarean section [None]
